FAERS Safety Report 4827887-2 (Version None)
Quarter: 2005Q4

REPORT INFORMATION
  Report Type: 
  Country: None (occurrence: None)
  Receive Date: 20051110
  Receipt Date: 20051031
  Transmission Date: 20060501
  Serious: Yes (Hospitalization)
  Sender: FDA-Public Use
  Company Number: USA0511112306

PATIENT
  Age: 73 Year
  Sex: Female

DRUGS (5)
  1. HUMULIN L [Suspect]
     Indication: DIABETES MELLITUS
     Dosage: 28 U DAY
     Dates: start: 19950101
  2. HUMULIN R [Suspect]
     Indication: DIABETES MELLITUS
     Dosage: 25 U DAY
     Dates: start: 19950101
  3. HYDROCHLOROTHIAZIDE [Concomitant]
  4. BENAZEPRIL HCL [Concomitant]
  5. WARFARIN [Concomitant]

REACTIONS (4)
  - DIABETES MELLITUS INADEQUATE CONTROL [None]
  - HYPERHIDROSIS [None]
  - TRANSIENT ISCHAEMIC ATTACK [None]
  - TREMOR [None]
